FAERS Safety Report 9956660 (Version 1)
Quarter: 2014Q1

REPORT INFORMATION
  Report Type: Report from Study
  Country: US (occurrence: US)
  Receive Date: 20140304
  Receipt Date: 20140304
  Transmission Date: 20141002
  Serious: No
  Sender: FDA-Public Use
  Company Number: US-ABBVIE-13P-163-1099053-00

PATIENT
  Age: 68 Year
  Sex: Male
  Weight: 104.42 kg

DRUGS (7)
  1. HUMIRA [Suspect]
     Indication: CROHN^S DISEASE
     Dates: start: 20130416, end: 20130416
  2. HUMIRA [Suspect]
     Indication: COLITIS ULCERATIVE
     Dates: start: 20130430, end: 20130430
  3. HUMIRA [Suspect]
     Dates: start: 20130514
  4. ASACOL [Concomitant]
     Indication: CROHN^S DISEASE
  5. ASACOL [Concomitant]
     Indication: COLITIS ULCERATIVE
  6. METHOTREXATE [Concomitant]
     Indication: CROHN^S DISEASE
  7. METHOTREXATE [Concomitant]
     Indication: COLITIS ULCERATIVE

REACTIONS (1)
  - Diarrhoea [Not Recovered/Not Resolved]
